FAERS Safety Report 8395460-8 (Version None)
Quarter: 2012Q2

REPORT INFORMATION
  Report Type: 
  Country: None (occurrence: None)
  Receive Date: 20120525
  Receipt Date: 20120525
  Transmission Date: 20120825
  Serious: Yes (Other)
  Sender: FDA-Public Use
  Company Number: None

PATIENT
  Age: 71 Year
  Sex: Female
  Weight: 53.3 kg

DRUGS (1)
  1. VANCOMYCIN HYDROCHLORIDE [Suspect]
     Indication: BACTERAEMIA
     Dosage: 1000MG IV
     Route: 042
     Dates: start: 20070317

REACTIONS (3)
  - OROPHARYNGEAL PAIN [None]
  - NAUSEA [None]
  - DIARRHOEA [None]
